FAERS Safety Report 5689665-4 (Version None)
Quarter: 2008Q1

REPORT INFORMATION
  Report Type: 
  Country: None (occurrence: None)
  Receive Date: 20080328
  Receipt Date: 20080225
  Transmission Date: 20080703
  Serious: Yes (Hospitalization)
  Sender: FDA-Public Use
  Company Number: M7001-02897-SPO-ES

PATIENT
  Age: 51 Year
  Sex: Female

DRUGS (3)
  1. TARGRETIN [Suspect]
     Indication: MYCOSIS FUNGOIDES
     Dosage: 450 MG, ORAL
     Route: 048
     Dates: start: 20060801
  2. PREDNISOLONE [Concomitant]
  3. INTERFERON ALFA (INTERFERON ALFA) [Concomitant]

REACTIONS (2)
  - DISEASE PROGRESSION [None]
  - MYCOSIS FUNGOIDES [None]
